FAERS Safety Report 6095115 (Version 2)
Quarter: 2018Q1

REPORT INFORMATION
  Report Type: Spontaneous
  Country: DE (occurrence: DE)
  Receive Date: 20060801
  Receipt Date: 20180212
  Transmission Date: 20180509
  Serious: Yes (Death)
  Sender: FDA-Public Use
  Company Number: DE-BAYER-1199411562

PATIENT
  Age: 41 Year
  Sex: Female
  Weight: 54 kg

DRUGS (1)
  1. CIPROBAY [CIPROFLOXACIN HYDROCHLORIDE] [Suspect]
     Active Substance: CIPROFLOXACIN
     Indication: SALMONELLOSIS
     Dosage: 500 MG (DAILY DOSE), , ORAL
     Route: 048
     Dates: start: 199406, end: 199406

REACTIONS (9)
  - Completed suicide [Fatal]
  - Anxiety [Fatal]
  - Fatigue [Fatal]
  - Listless [Fatal]
  - General physical health deterioration [Fatal]
  - Depression [Fatal]
  - Abdominal discomfort [Fatal]
  - Asthenia [Fatal]
  - Thinking abnormal [Fatal]

NARRATIVE: CASE EVENT DATE: 199406
